FAERS Safety Report 9356498 (Version 1)
Quarter: 2013Q2

REPORT INFORMATION
  Report Type: Spontaneous
  Country: US (occurrence: US)
  Receive Date: 20130619
  Receipt Date: 20130619
  Transmission Date: 20140414
  Serious: No
  Sender: FDA-Public Use
  Company Number: US-BAYER-2013-075781

PATIENT
  Sex: Female

DRUGS (1)
  1. ANGELIQ [Suspect]
     Dosage: UNK
     Dates: start: 2011, end: 201305

REACTIONS (1)
  - Fungal infection [Recovered/Resolved]
